FAERS Safety Report 12641406 (Version 1)
Quarter: 2016Q3

REPORT INFORMATION
  Report Type: Spontaneous
  Country: US (occurrence: US)
  Receive Date: 20160810
  Receipt Date: 20160810
  Transmission Date: 20161109
  Serious: No
  Sender: FDA-Public Use
  Company Number: US-PFIZER INC-2016377956

PATIENT
  Age: 50 Year
  Sex: Male
  Weight: 76.2 kg

DRUGS (1)
  1. VIAGRA [Suspect]
     Active Substance: SILDENAFIL CITRATE
     Indication: ERECTILE DYSFUNCTION
     Dosage: LITTLE PIECES FROM A 100 MG TABLET
     Dates: start: 201607, end: 2016

REACTIONS (5)
  - Migraine [Recovered/Resolved]
  - Tension headache [Unknown]
  - Male orgasmic disorder [Unknown]
  - Suspected counterfeit product [Unknown]
  - Feeling abnormal [Unknown]

NARRATIVE: CASE EVENT DATE: 2016
